FAERS Safety Report 8433472-6 (Version None)
Quarter: 2012Q2

REPORT INFORMATION
  Report Type: 
  Country: None (occurrence: None)
  Receive Date: 20120613
  Receipt Date: 20120605
  Transmission Date: 20120825
  Serious: Yes (Other)
  Sender: FDA-Public Use
  Company Number: IT-JNJFOC-20120602609

PATIENT
  Age: 63 Year
  Sex: Female

DRUGS (5)
  1. DENIBAN [Suspect]
     Indication: SELF INJURIOUS BEHAVIOUR
     Route: 048
     Dates: start: 20120605, end: 20120605
  2. AMITRIPTYLINE HYDROCHLORIDE [Suspect]
     Indication: SELF INJURIOUS BEHAVIOUR
     Route: 048
     Dates: start: 20120605, end: 20120605
  3. HALDOL [Suspect]
     Indication: SELF INJURIOUS BEHAVIOUR
     Route: 048
     Dates: start: 20120605, end: 20120605
  4. LORAZEPAM [Suspect]
     Indication: SELF INJURIOUS BEHAVIOUR
     Route: 048
     Dates: start: 20120605, end: 20120605
  5. TRAZODONE HCL [Suspect]
     Indication: SELF INJURIOUS BEHAVIOUR
     Route: 048
     Dates: start: 20120605, end: 20120605

REACTIONS (4)
  - SELF INJURIOUS BEHAVIOUR [None]
  - PAIN [None]
  - MULTIPLE DRUG OVERDOSE INTENTIONAL [None]
  - COMA [None]
